FAERS Safety Report 15977488 (Version 4)
Quarter: 2020Q1

REPORT INFORMATION
  Report Type: Report from Study
  Country: EG (occurrence: EG)
  Receive Date: 20190218
  Receipt Date: 20200304
  Transmission Date: 20200409
  Serious: Yes (Other)
  Sender: FDA-Public Use
  Company Number: PHHY2019EG035829

PATIENT
  Age: 53 Year
  Sex: Male

DRUGS (3)
  1. DALACIN C [Concomitant]
     Active Substance: CLINDAMYCIN PHOSPHATE
     Indication: TOOTH DISORDER
     Route: 065
  2. CLINDAM [Concomitant]
     Indication: TOOTH DISORDER
     Route: 065
  3. GLIVEC [Suspect]
     Active Substance: IMATINIB MESYLATE
     Indication: CHRONIC MYELOID LEUKAEMIA
     Dosage: 400 MG, QD
     Route: 048
     Dates: start: 2014

REACTIONS (9)
  - White blood cell count increased [Unknown]
  - Renal impairment [Unknown]
  - Bone pain [Not Recovered/Not Resolved]
  - Periorbital swelling [Not Recovered/Not Resolved]
  - Abdominal rigidity [Recovering/Resolving]
  - Hepatic enzyme increased [Unknown]
  - Ocular hyperaemia [Recovering/Resolving]
  - Constipation [Recovering/Resolving]
  - Erythema [Recovering/Resolving]

NARRATIVE: CASE EVENT DATE: 201807
